FAERS Safety Report 4548427-1 (Version None)
Quarter: 2005Q1

REPORT INFORMATION
  Report Type: 
  Country: None (occurrence: None)
  Receive Date: 20050106
  Receipt Date: 20041221
  Transmission Date: 20050727
  Serious: Yes (Hospitalization, Other)
  Sender: FDA-Public Use
  Company Number: USA041286744

PATIENT
  Age: 72 Year
  Sex: Male

DRUGS (2)
  1. HUMULIN R [Suspect]
     Dosage: 78 U DAY
     Dates: start: 20020101
  2. HUMULIN N [Suspect]
     Dosage: 144 U DAY
     Dates: start: 20020101

REACTIONS (7)
  - BLOOD GLUCOSE INCREASED [None]
  - CONDITION AGGRAVATED [None]
  - DEVICE MALFUNCTION [None]
  - FEELING ABNORMAL [None]
  - HYPOACUSIS [None]
  - PHARMACEUTICAL PRODUCT COMPLAINT [None]
  - PNEUMONIA [None]
